FAERS Safety Report 9512422 (Version 2)
Quarter: 2013Q4

REPORT INFORMATION
  Report Type: Spontaneous
  Country: EG (occurrence: EG)
  Receive Date: 20130910
  Receipt Date: 20131113
  Transmission Date: 20140711
  Serious: Yes (Hospitalization)
  Sender: FDA-Public Use
  Company Number: EG-B.I. PHARMACEUTICALS,INC./RIDGEFIELD-2013-BI-28013ET

PATIENT
  Age: 82 Year
  Sex: Male
  Weight: 80 kg

DRUGS (8)
  1. PRADAXA [Suspect]
     Indication: HIP ARTHROPLASTY
     Dosage: PRADAXA WAS GIVEN 110MG 2 CAP POST SURGERY FOLLOWED BY ONE CAP 110MG DAILY.
     Route: 048
  2. COTAREG [Concomitant]
  3. ASPIRIN [Concomitant]
  4. PELITAL [Concomitant]
  5. ZOLAM [Concomitant]
  6. CATAFLAN 50 [Concomitant]
     Dates: start: 20130817
  7. PRARELANE [Concomitant]
  8. CAPOTEN [Concomitant]

REACTIONS (3)
  - Melaena [Not Recovered/Not Resolved]
  - Blood urine present [Unknown]
  - Urinary sediment present [Unknown]
